FAERS Safety Report 9407873 (Version 1)
Quarter: 2013Q3

REPORT INFORMATION
  Report Type: Spontaneous
  Country: US (occurrence: None)
  Receive Date: 20130717
  Receipt Date: 20130717
  Transmission Date: 20140515
  Serious: Yes (Hospitalization)
  Sender: FDA-Public Use
  Company Number: None

PATIENT
  Age: 87 Year
  Sex: Male
  Weight: 101.6 kg

DRUGS (1)
  1. ALENDRONATE [Suspect]
     Indication: OSTEOARTHRITIS
     Route: 048
     Dates: start: 20070818, end: 20130226

REACTIONS (5)
  - Iron deficiency anaemia [None]
  - Gastritis erosive [None]
  - Polyp [None]
  - Gastric haemorrhage [None]
  - Dyspnoea exertional [None]
